FAERS Safety Report 8303818-8 (Version None)
Quarter: 2012Q2

REPORT INFORMATION
  Report Type: 
  Country: None (occurrence: None)
  Receive Date: 20120423
  Receipt Date: 20120416
  Transmission Date: 20120825
  Serious: Yes (Other)
  Sender: FDA-Public Use
  Company Number: PHFR2012GB001903

PATIENT
  Sex: Male

DRUGS (7)
  1. DIAZEPAM [Concomitant]
     Indication: ANXIETY
     Dosage: 20 MG, UNK
     Route: 048
  2. RAMIPRIL [Concomitant]
     Indication: HYPERTENSION
     Dosage: 10 MG, UNK
     Route: 048
  3. BENZODIAZEPINES [Concomitant]
  4. CLOZARIL [Suspect]
     Dosage: 450 MG, UNK
     Route: 048
  5. DEPAKOTE [Concomitant]
     Indication: MOOD SWINGS
     Dosage: 1500 MG, UNK
     Route: 048
  6. TRAMADOL HCL [Concomitant]
     Indication: ANALGESIC THERAPY
     Dosage: 400 MG, UNK
     Route: 048
  7. OLANZAPINE [Concomitant]
     Indication: AFFECTIVE DISORDER
     Dosage: 20 MG, UNK
     Route: 048

REACTIONS (2)
  - MEDICATION ERROR [None]
  - SELF INJURIOUS BEHAVIOUR [None]
